FAERS Safety Report 5957155-7 (Version None)
Quarter: 2008Q4

REPORT INFORMATION
  Report Type: 
  Country: None (occurrence: None)
  Receive Date: 20081117
  Receipt Date: 20081117
  Transmission Date: 20090506
  Serious: No
  Sender: FDA-Public Use
  Company Number: None

PATIENT
  Age: 45 Year
  Sex: Female
  Weight: 83.9154 kg

DRUGS (1)
  1. CIPROFLOXACIN HYDROCHLORIDE 500MG [Suspect]
     Indication: CAT SCRATCH DISEASE
     Dosage: 1,000MG BID PO
     Route: 048
     Dates: start: 20081101, end: 20081115

REACTIONS (8)
  - FATIGUE [None]
  - HEADACHE [None]
  - JOINT STIFFNESS [None]
  - MUSCLE SPASMS [None]
  - MYALGIA [None]
  - NAUSEA [None]
  - TEMPOROMANDIBULAR JOINT SYNDROME [None]
  - VOMITING [None]
